FAERS Safety Report 17870894 (Version 3)
Quarter: 2020Q2

REPORT INFORMATION
  Report Type: Spontaneous
  Country: FR (occurrence: FR)
  Receive Date: 20200608
  Receipt Date: 20200617
  Transmission Date: 20200714
  Serious: Yes (Life-Threatening, Hospitalization)
  Sender: FDA-Public Use
  Company Number: FR-PFIZER INC-2020214421

PATIENT
  Age: 78 Year
  Sex: Male

DRUGS (1)
  1. AMLODIPINE BESILATE [Suspect]
     Active Substance: AMLODIPINE BESYLATE
     Indication: HYPERTENSION
     Dosage: 10 MG, 1X/DAY
     Route: 048

REACTIONS (5)
  - Decreased appetite [Recovering/Resolving]
  - Hypovitaminosis [Recovering/Resolving]
  - Weight decreased [Recovering/Resolving]
  - Gingival hypertrophy [Recovered/Resolved]
  - Malnutrition [Recovering/Resolving]
